FAERS Safety Report 13485113 (Version 1)
Quarter: 2017Q2

REPORT INFORMATION
  Report Type: Spontaneous
  Country: FR (occurrence: FR)
  Receive Date: 20170425
  Receipt Date: 20170425
  Transmission Date: 20170830
  Serious: Yes (Death, Life-Threatening, Other)
  Sender: FDA-Public Use
  Company Number: FR-ACCORD-050608

PATIENT
  Age: 63 Year
  Sex: Female

DRUGS (8)
  1. PERJETA [Suspect]
     Active Substance: PERTUZUMAB
     Indication: PRODUCT USED FOR UNKNOWN INDICATION
     Dosage: STRENGTH: 420 MG
     Route: 042
     Dates: start: 2013, end: 20150122
  2. TRANXENE T-TAB [Suspect]
     Active Substance: CLORAZEPATE DIPOTASSIUM
     Indication: PRODUCT USED FOR UNKNOWN INDICATION
     Dosage: STERNGTH: 20 MG
     Route: 048
  3. RISPERIDAL [Concomitant]
     Active Substance: RISPERIDONE
     Dosage: IN THE EVENING?STRENGTH: 4 MG
     Route: 048
  4. THERALENE [Concomitant]
     Active Substance: TRIMEPRAZINE
     Dosage: STRENGTH: 4%?IN THE EVENING
     Route: 048
  5. DUROGESIC [Concomitant]
     Active Substance: FENTANYL
     Route: 062
  6. HERCEPTIN [Suspect]
     Active Substance: TRASTUZUMAB
     Indication: PRODUCT USED FOR UNKNOWN INDICATION
     Route: 042
     Dates: start: 2013, end: 20150122
  7. FLUOXETINE [Concomitant]
     Active Substance: FLUOXETINE HYDROCHLORIDE
     Route: 048
  8. DOCETAXEL ACCORD [Suspect]
     Active Substance: DOCETAXEL
     Indication: PRODUCT USED FOR UNKNOWN INDICATION
     Route: 042
     Dates: start: 2013, end: 20150122

REACTIONS (4)
  - Coma [Recovered/Resolved with Sequelae]
  - Renal failure [Recovered/Resolved]
  - Toxic leukoencephalopathy [Unknown]
  - Hepatocellular injury [Unknown]

NARRATIVE: CASE EVENT DATE: 20150123
